FAERS Safety Report 6738799-1 (Version None)
Quarter: 2010Q2

REPORT INFORMATION
  Report Type: 
  Country: None (occurrence: None)
  Receive Date: 20100524
  Receipt Date: 20100511
  Transmission Date: 20101027
  Serious: Yes (Hospitalization)
  Sender: FDA-Public Use
  Company Number: DK-WATSON-2010-06649

PATIENT
  Age: 76 Year
  Sex: Female

DRUGS (2)
  1. METHYLPREDNISOLONE ACETATE [Suspect]
     Indication: ENDOCRINE OPHTHALMOPATHY
     Dosage: 500 MG, DAILY
     Route: 042
     Dates: start: 20040301
  2. METHYLPREDNISOLONE ACETATE [Suspect]
     Dosage: UNK
     Route: 042
     Dates: start: 20030901

REACTIONS (1)
  - MYOCARDIAL INFARCTION [None]
